FAERS Safety Report 7414810-X (Version None)
Quarter: 2011Q2

REPORT INFORMATION
  Report Type: 
  Country: None (occurrence: None)
  Receive Date: 20110414
  Receipt Date: 20101108
  Transmission Date: 20111010
  Serious: No
  Sender: FDA-Public Use
  Company Number: A0891317A

PATIENT
  Age: 82 Year
  Sex: Female

DRUGS (2)
  1. LUXIQ [Suspect]
  2. NO CONCURRENT MEDICATION [Concomitant]

REACTIONS (3)
  - LACRIMATION INCREASED [None]
  - NASAL CONGESTION [None]
  - EYE IRRITATION [None]
